FAERS Safety Report 12825343 (Version 1)
Quarter: 2016Q4

REPORT INFORMATION
  Report Type: Report from Study
  Country: RO (occurrence: RO)
  Receive Date: 20161006
  Receipt Date: 20161006
  Transmission Date: 20170207
  Serious: Yes (Hospitalization)
  Sender: FDA-Public Use
  Company Number: RO-KADMON PHARMACEUTICALS, LLC-KAD201609-003601

PATIENT
  Age: 60 Year
  Sex: Female

DRUGS (8)
  1. RIBAVIRIN. [Suspect]
     Active Substance: RIBAVIRIN
     Indication: HEPATITIS C
     Dosage: FILM-COATED TABLET
     Route: 048
     Dates: start: 20160922
  2. EXVIERA [Suspect]
     Active Substance: DASABUVIR
     Indication: HEPATITIS C
     Dosage: FILM-COATED TABLET
     Route: 048
     Dates: start: 20160922
  3. RIBAVIRIN. [Suspect]
     Active Substance: RIBAVIRIN
     Indication: HEPATIC CIRRHOSIS
  4. VIEKIRAX [Suspect]
     Active Substance: OMBITASVIR\PARITAPREVIR\RITONAVIR
     Indication: HEPATITIS C
     Dosage: FILM-COATED TABLET
     Route: 048
     Dates: start: 20160922
  5. VIEKIRAX [Suspect]
     Active Substance: OMBITASVIR\PARITAPREVIR\RITONAVIR
     Indication: HEPATIC CIRRHOSIS
  6. EXVIERA [Suspect]
     Active Substance: DASABUVIR
     Indication: HEPATIC CIRRHOSIS
  7. NITROMINT 2.6 MG TABLET [Concomitant]
     Indication: HYPERTENSION
     Route: 048
     Dates: start: 20160928
  8. NOLET 5 MG TABLET [Concomitant]
     Indication: HYPERTENSION
     Route: 048
     Dates: start: 20160928

REACTIONS (4)
  - Heart rate abnormal [Unknown]
  - Hypertension [Unknown]
  - Choking sensation [Recovered/Resolved]
  - Tremor [Unknown]

NARRATIVE: CASE EVENT DATE: 20160924
